FAERS Safety Report 7693055-2 (Version None)
Quarter: 2011Q3

REPORT INFORMATION
  Report Type: 
  Country: None (occurrence: None)
  Receive Date: 20110819
  Receipt Date: 20110817
  Transmission Date: 20111222
  Serious: Yes (Other)
  Sender: FDA-Public Use
  Company Number: DE-PFIZER INC-2011189248

PATIENT
  Age: 81 Year
  Sex: Male

DRUGS (1)
  1. TOLTERODINE TARTRATE [Suspect]
     Indication: HYPERTONIC BLADDER
     Dosage: 4 MG, 1X/DAY (TAKEN IN THE EVENING)
     Route: 048
     Dates: start: 20110810, end: 20110812

REACTIONS (4)
  - ABDOMINAL PAIN [None]
  - PALPITATIONS [None]
  - URINARY RETENTION [None]
  - DRY MOUTH [None]
